FAERS Safety Report 21299263 (Version 1)
Quarter: 2022Q3

REPORT INFORMATION
  Report Type: Spontaneous
  Country: US (occurrence: None)
  Receive Date: 20220906
  Receipt Date: 20220906
  Transmission Date: 20221027
  Serious: Yes (Other)
  Sender: FDA-Public Use
  Company Number: 2022A301753

PATIENT
  Sex: Female
  Weight: 69.4 kg

DRUGS (2)
  1. LYNPARZA [Suspect]
     Active Substance: OLAPARIB
     Indication: Ovarian epithelial cancer
     Route: 048
     Dates: start: 202201
  2. LYNPARZA [Suspect]
     Active Substance: OLAPARIB
     Indication: BRCA2 gene mutation
     Route: 048
     Dates: start: 202201

REACTIONS (4)
  - Thrombocytopenia [Unknown]
  - Blood creatine increased [Unknown]
  - Anaemia [Unknown]
  - Leukopenia [Unknown]
